FAERS Safety Report 5116838-1 (Version None)
Quarter: 2006Q3

REPORT INFORMATION
  Report Type: 
  Country: None (occurrence: None)
  Receive Date: 20060925
  Receipt Date: 20060911
  Transmission Date: 20061208
  Serious: Yes (Other)
  Sender: FDA-Public Use
  Company Number: 2006101511

PATIENT
  Age: 65 Year
  Sex: Female
  Weight: 63.5036 kg

DRUGS (13)
  1. LYRICA [Suspect]
     Indication: NEUROPATHY
     Dosage: 150 MG (50 MG, 3 IN D), ORAL
     Route: 048
     Dates: start: 20060202
  2. NEURONTIN [Suspect]
     Indication: POST HERPETIC NEURALGIA
     Dosage: ORAL
     Route: 048
     Dates: start: 20040101, end: 20060201
  3. CELEBREX [Concomitant]
  4. LESCOL XL [Concomitant]
  5. FEMHRT [Concomitant]
  6. CARISOPRODOL [Concomitant]
  7. ACIPHEX [Concomitant]
  8. ASPIRIN [Concomitant]
  9. FENTANYL [Concomitant]
  10. OXYCODONE HCL [Concomitant]
  11. CALCIUM GLUCONATE [Concomitant]
  12. ALL OTHER THERAPEUTIC PRODUCTS [Concomitant]
  13. MULTIVITAMIN [Concomitant]

REACTIONS (16)
  - ASTHENIA [None]
  - BLOOD CHOLESTEROL INCREASED [None]
  - DISTURBANCE IN ATTENTION [None]
  - DRUG WITHDRAWAL SYNDROME [None]
  - DYSKINESIA [None]
  - FATIGUE [None]
  - MEMORY IMPAIRMENT [None]
  - MOVEMENT DISORDER [None]
  - MYALGIA [None]
  - PAIN [None]
  - PYREXIA [None]
  - SOMNOLENCE [None]
  - SPEECH DISORDER [None]
  - THERAPY NON-RESPONDER [None]
  - UNEVALUABLE EVENT [None]
  - VITAMIN D DEFICIENCY [None]
